FAERS Safety Report 20255168 (Version 2)
Quarter: 2022Q4

REPORT INFORMATION
  Report Type: Spontaneous
  Country: DE (occurrence: DE)
  Receive Date: 20211230
  Receipt Date: 20221103
  Transmission Date: 20230113
  Serious: Yes (Hospitalization)
  Sender: FDA-Public Use
  Company Number: DE-ADRED-07388-01

PATIENT
  Age: 77 Year
  Sex: Male
  Weight: 98 kg

DRUGS (9)
  1. CARVEDILOL [Suspect]
     Active Substance: CARVEDILOL
     Indication: Product used for unknown indication
     Dosage: 1 DOSAGE FORMS DAILY; 25 MG, 0.5-0-0.5-0
     Route: 048
  2. EPLERENONE [Suspect]
     Active Substance: EPLERENONE
     Indication: Product used for unknown indication
     Dosage: 25 MILLIGRAM DAILY; 1-0-0-0
     Route: 048
  3. APIXABAN [Suspect]
     Active Substance: APIXABAN
     Indication: Product used for unknown indication
     Dosage: 10 MILLIGRAM DAILY; 1-0-1-0
     Route: 048
  4. SACUBITRIL\VALSARTAN [Suspect]
     Active Substance: SACUBITRIL\VALSARTAN
     Indication: Product used for unknown indication
     Dosage: 4 DOSAGE FORMS DAILY; 49|51 MG, 2-0-2-0
     Route: 048
  5. ALLOPURINOL [Concomitant]
     Active Substance: ALLOPURINOL
     Indication: Product used for unknown indication
     Dosage: 100 MILLIGRAM DAILY; 0-0-1-0
     Route: 048
  6. TAMSULOSIN [Concomitant]
     Active Substance: TAMSULOSIN
     Indication: Product used for unknown indication
     Dosage: .4 MILLIGRAM DAILY; 0-0-1-0
     Route: 048
  7. ATORVASTATIN [Concomitant]
     Active Substance: ATORVASTATIN
     Indication: Product used for unknown indication
     Dosage: 10 MILLIGRAM DAILY; 0-0-1-0
     Route: 048
  8. CHOLECALCIFEROL [Concomitant]
     Active Substance: CHOLECALCIFEROL
     Indication: Product used for unknown indication
     Dosage: 20000 IU (INTERNATIONAL UNIT) DAILY; 1-0-0-0, COLECALCIFEROL (VITAMIN D)
     Route: 048
  9. agiolax [Concomitant]
     Indication: Product used for unknown indication
     Dosage: 520 MILLIGRAM PER GRAM DAILY; 520 MG/G, 1-0-0-0

REACTIONS (9)
  - Dizziness [Recovering/Resolving]
  - Hypotension [Recovering/Resolving]
  - Tachycardia [Recovering/Resolving]
  - Dyspnoea [Recovering/Resolving]
  - Bradycardia [Recovering/Resolving]
  - Atrial fibrillation [Recovering/Resolving]
  - General physical health deterioration [Recovering/Resolving]
  - Dyspnoea exertional [Recovering/Resolving]
  - Anaemia [Recovering/Resolving]
